FAERS Safety Report 7227732-4 (Version None)
Quarter: 2011Q1

REPORT INFORMATION
  Report Type: 
  Country: None (occurrence: None)
  Receive Date: 20110114
  Receipt Date: 20110107
  Transmission Date: 20110831
  Serious: Yes (Hospitalization)
  Sender: FDA-Public Use
  Company Number: US-US-EMD SERONO, INC.-7029021

PATIENT
  Sex: Male

DRUGS (2)
  1. REBIF [Suspect]
     Indication: MULTIPLE SCLEROSIS
     Route: 058
     Dates: start: 20031219, end: 20101124
  2. ADVIL [Concomitant]
     Indication: PAIN

REACTIONS (6)
  - INJECTION SITE PAIN [None]
  - MENINGITIS BACTERIAL [None]
  - INJECTION SITE INFECTION [None]
  - INJECTION SITE ERYTHEMA [None]
  - STAPHYLOCOCCAL INFECTION [None]
  - INJECTION SITE NODULE [None]
